FAERS Safety Report 18579084 (Version 1)
Quarter: 2020Q4

REPORT INFORMATION
  Report Type: Spontaneous
  Country: US (occurrence: US)
  Receive Date: 20201202
  Receipt Date: 20201202
  Transmission Date: 20210114
  Serious: Yes (Other)
  Sender: FDA-Public Use
  Company Number: None

PATIENT
  Age: 63 Year
  Sex: Female
  Weight: 58.95 kg

DRUGS (22)
  1. APIXIBAN [Concomitant]
     Active Substance: APIXABAN
     Dates: start: 20200921, end: 20200929
  2. CLONIDINE. [Concomitant]
     Active Substance: CLONIDINE
     Dates: start: 20200923, end: 20201014
  3. CYMBALTA [Concomitant]
     Active Substance: DULOXETINE HYDROCHLORIDE
     Dates: start: 20200923, end: 20201113
  4. INSULIN [Concomitant]
     Active Substance: INSULIN NOS
     Dates: start: 20200923, end: 20201113
  5. CRESEMBA [Concomitant]
     Active Substance: ISAVUCONAZONIUM SULFATE
     Dates: start: 20200923, end: 20201113
  6. LOPERAMIDE [Concomitant]
     Active Substance: LOPERAMIDE
     Dates: start: 20200923, end: 20201113
  7. POTASSIUM CHLORIDE. [Concomitant]
     Active Substance: POTASSIUM CHLORIDE
     Dates: start: 20200923, end: 20201112
  8. MARINOL [Concomitant]
     Active Substance: DRONABINOL
     Dates: start: 20200922, end: 20201004
  9. AXICABTAGENE CILOLEUCEL KITE PHARMA [Suspect]
     Active Substance: AXICABTAGENE CILOLEUCEL
     Indication: DIFFUSE LARGE B-CELL LYMPHOMA
     Dosage: ?          OTHER FREQUENCY:ONCE;?
     Route: 041
     Dates: start: 20200921, end: 20200921
  10. CIPROFLOXACIN. [Concomitant]
     Active Substance: CIPROFLOXACIN
     Dates: start: 20200921, end: 20200922
  11. GABAPENTIN. [Concomitant]
     Active Substance: GABAPENTIN
     Dates: start: 20200921, end: 20201113
  12. MAGNESIUM SULFATE. [Concomitant]
     Active Substance: MAGNESIUM SULFATE
     Dates: start: 20200922, end: 20201113
  13. FENTANYL DURAGESIC [Concomitant]
     Dates: end: 20201109
  14. HYDROMORPHONE [Concomitant]
     Active Substance: HYDROMORPHONE
     Dates: start: 20200923, end: 20201113
  15. ALLOPURINOL. [Concomitant]
     Active Substance: ALLOPURINOL
     Dates: start: 20200921, end: 20200923
  16. CASPOFUNGIN [Concomitant]
     Active Substance: CASPOFUNGIN
     Dates: start: 20200923, end: 20201019
  17. FLUCONAZOLE. [Concomitant]
     Active Substance: FLUCONAZOLE
     Dates: start: 20200921, end: 20200930
  18. FUROSEMIDE. [Concomitant]
     Active Substance: FUROSEMIDE
     Dates: start: 20200923, end: 20201029
  19. HYDRALAZINE [Concomitant]
     Active Substance: HYDRALAZINE HYDROCHLORIDE
     Dates: start: 20200923, end: 20200930
  20. ACYCLOVIR. [Concomitant]
     Active Substance: ACYCLOVIR
     Dates: start: 20200923, end: 20201113
  21. FAMOTIDINE. [Concomitant]
     Active Substance: FAMOTIDINE
     Dates: start: 20200923, end: 20201113
  22. KEPPRA [Concomitant]
     Active Substance: LEVETIRACETAM
     Dates: start: 20200923, end: 20201011

REACTIONS (2)
  - Cytokine release syndrome [None]
  - Neurotoxicity [None]

NARRATIVE: CASE EVENT DATE: 20200923
